FAERS Safety Report 5498564-2 (Version None)
Quarter: 2007Q4

REPORT INFORMATION
  Report Type: 
  Country: None (occurrence: None)
  Receive Date: 20071026
  Receipt Date: 20071024
  Transmission Date: 20080405
  Serious: Yes (Death, Life-Threatening, Hospitalization, Other)
  Sender: FDA-Public Use
  Company Number: HQWYE069107SEP07

PATIENT
  Sex: Female
  Weight: 80.81 kg

DRUGS (7)
  1. TORISEL [Suspect]
     Indication: RENAL CELL CARCINOMA STAGE UNSPECIFIED
     Route: 042
     Dates: start: 20070820, end: 20070827
  2. CALCIUM [Concomitant]
     Dosage: DOSE AND DATES OF THERAPY NOT PROVIDED
  3. XANAX [Concomitant]
     Dosage: NOT PROVIDED
     Route: 065
  4. ATIVAN [Concomitant]
     Dosage: NOT PROVIDED
     Route: 065
  5. MORPHINE [Concomitant]
     Dosage: NOT PROVIDED
     Route: 065
  6. WELLBUTRIN [Concomitant]
     Dosage: 300 MG (THERAPY DATES NOT PROVIDED)
  7. ASCORBIC ACID/ERGOCALCIFEROL/FOLIC ACID/NICOTINAMIDE/PANTHENOL/RETINOL [Concomitant]
     Dosage: DOSE AND THERAPY DATES NOT PROVIDED

REACTIONS (4)
  - DISEASE PROGRESSION [None]
  - PLEURAL EFFUSION [None]
  - PNEUMONIA [None]
  - RESPIRATORY FAILURE [None]
